FAERS Safety Report 9241829 (Version 1)
Quarter: 2013Q2

REPORT INFORMATION
  Report Type: Spontaneous
  Country: FR (occurrence: FR)
  Receive Date: 20130419
  Receipt Date: 20130419
  Transmission Date: 20140414
  Serious: Yes (Hospitalization)
  Sender: FDA-Public Use
  Company Number: FR-ROCHE-1213818

PATIENT
  Age: 69 Year
  Sex: Female

DRUGS (8)
  1. ROCEPHINE [Suspect]
     Indication: PRODUCT USED FOR UNKNOWN INDICATION
     Route: 042
     Dates: start: 20130321, end: 20130325
  2. VFEND [Suspect]
     Indication: PRODUCT USED FOR UNKNOWN INDICATION
     Route: 048
     Dates: start: 20130321, end: 20130327
  3. NOXAFIL [Concomitant]
     Route: 065
     Dates: start: 20130305
  4. ZELITREX [Concomitant]
     Route: 065
  5. INIPOMP [Concomitant]
     Route: 065
  6. CETIRIZINE [Concomitant]
     Route: 065
  7. SMECTA [Concomitant]
  8. TRANXENE [Concomitant]
     Route: 065

REACTIONS (3)
  - Toxic skin eruption [Recovering/Resolving]
  - Eczema [Recovering/Resolving]
  - Leukocytoclastic vasculitis [Recovering/Resolving]
